FAERS Safety Report 4834894-2 (Version None)
Quarter: 2005Q4

REPORT INFORMATION
  Report Type: 
  Country: None (occurrence: None)
  Receive Date: 20051115
  Receipt Date: 20051102
  Transmission Date: 20060501
  Serious: No
  Sender: FDA-Public Use
  Company Number: 219188

PATIENT
  Sex: Female

DRUGS (1)
  1. HERCEPTIN [Suspect]

REACTIONS (1)
  - ANTIBODY TEST POSITIVE [None]
